FAERS Safety Report 8983466 (Version 1)
Quarter: 2012Q4

REPORT INFORMATION
  Report Type: 
  Country: FR (occurrence: FR)
  Receive Date: 20121224
  Receipt Date: 20121224
  Transmission Date: 20130627
  Serious: Yes (Hospitalization)
  Sender: FDA-Public Use
  Company Number: FR-BRISTOL-MYERS SQUIBB COMPANY-17217209

PATIENT
  Age: 91 Year
  Sex: Male

DRUGS (4)
  1. COUMADIN TABS 2 MG [Suspect]
     Route: 048
     Dates: end: 20121022
  2. SOTALOL [Concomitant]
  3. COVERSYL [Concomitant]
  4. ALDACTAZINE [Concomitant]

REACTIONS (2)
  - Fall [Recovered/Resolved]
  - Subdural haematoma [Recovered/Resolved]
